FAERS Safety Report 8606589 (Version 2)
Quarter: 2014Q2

REPORT INFORMATION
  Report Type: Spontaneous
  Country: US (occurrence: US)
  Receive Date: 20120608
  Receipt Date: 20140418
  Transmission Date: 20141212
  Serious: Yes (Hospitalization, Disabling, Other)
  Sender: FDA-Public Use
  Company Number: US-ASTRAZENECA-2011SE43789

PATIENT
  Age: 63 Year
  Sex: Female
  Weight: 72.6 kg

DRUGS (6)
  1. PULMICORT FLEXHALER [Suspect]
     Route: 055
  2. NEXIUM [Suspect]
     Indication: GASTROOESOPHAGEAL REFLUX DISEASE
     Route: 048
     Dates: start: 2001, end: 2012
  3. NEXIUM [Suspect]
     Indication: GASTROOESOPHAGEAL REFLUX DISEASE
     Route: 048
     Dates: start: 20140318
  4. OMEPRAZOLE [Suspect]
     Indication: GASTROOESOPHAGEAL REFLUX DISEASE
     Route: 048
     Dates: start: 2012
  5. LUNESTA [Concomitant]
  6. CELEBREX [Concomitant]

REACTIONS (26)
  - Road traffic accident [Unknown]
  - Limb crushing injury [Unknown]
  - Gait disturbance [Unknown]
  - Gastrooesophageal reflux disease [Unknown]
  - Asthma [Unknown]
  - Hypoacusis [Unknown]
  - Dyspnoea [Unknown]
  - Malaise [Unknown]
  - Nausea [Unknown]
  - Cartilage injury [Unknown]
  - Spondylitis [Unknown]
  - Body height decreased [Unknown]
  - Weight increased [Unknown]
  - Tooth erosion [Unknown]
  - Sinus disorder [Unknown]
  - Oral discomfort [Unknown]
  - Speech disorder [Unknown]
  - Asthma [Unknown]
  - Infection [Unknown]
  - Hyperphagia [Unknown]
  - Stress [Unknown]
  - Poor quality sleep [Unknown]
  - Throat irritation [Unknown]
  - Drug ineffective [Unknown]
  - Drug dose omission [Unknown]
  - Intentional product misuse [Unknown]
